FAERS Safety Report 7595409-1 (Version None)
Quarter: 2011Q2

REPORT INFORMATION
  Report Type: 
  Country: None (occurrence: None)
  Receive Date: 20110620
  Receipt Date: 20110505
  Transmission Date: 20111010
  Serious: Yes (Hospitalization)
  Sender: FDA-Public Use
  Company Number: UTC-006894

PATIENT
  Age: 60 Year
  Sex: Female

DRUGS (3)
  1. COUMADIN [Concomitant]
  2. TYVASO [Suspect]
     Indication: COR PULMONALE CHRONIC
     Dosage: 18-54 MICROGRAMS (4 IN 1 D), INHALATION
     Route: 055
     Dates: start: 20100608
  3. REVATIO [Concomitant]

REACTIONS (2)
  - COLLAPSE OF LUNG [None]
  - INTERSTITIAL LUNG DISEASE [None]
